FAERS Safety Report 7202396-4 (Version None)
Quarter: 2010Q4

REPORT INFORMATION
  Report Type: 
  Country: None (occurrence: None)
  Receive Date: 20101229
  Receipt Date: 20101215
  Transmission Date: 20110411
  Serious: Yes (Other)
  Sender: FDA-Public Use
  Company Number: PHHY2010TW85356

PATIENT
  Age: 52 Year
  Sex: Female

DRUGS (4)
  1. PARACETAMOL [Suspect]
     Indication: OROPHARYNGEAL PAIN
  2. MEFENAMIC ACID [Suspect]
     Indication: OROPHARYNGEAL PAIN
  3. CHLORPHENIRAMINE [Suspect]
     Indication: OROPHARYNGEAL PAIN
  4. TMN-1 [Suspect]
     Dosage: 3 TIMES A DAY

REACTIONS (4)
  - ECCHYMOSIS [None]
  - GINGIVAL BLEEDING [None]
  - PETECHIAE [None]
  - THROMBOCYTOPENIA [None]
